FAERS Safety Report 7309376-9 (Version None)
Quarter: 2011Q1

REPORT INFORMATION
  Report Type: 
  Country: None (occurrence: None)
  Receive Date: 20110211
  Receipt Date: 20110127
  Transmission Date: 20110831
  Serious: Yes (Hospitalization)
  Sender: FDA-Public Use
  Company Number: ACO_21634_2011

PATIENT
  Age: 56 Year
  Sex: Female
  Weight: 59 kg

DRUGS (16)
  1. AVONEX [Concomitant]
  2. AMPYRA [Suspect]
  3. VITAMINS NOS (VITAMINS NOS) [Concomitant]
  4. MAGNESIUM (MAGNESIUM) [Concomitant]
  5. AMPYRA [Suspect]
     Indication: GAIT DISTURBANCE
     Dosage: 10 MG, BID, ORAL
     Route: 048
     Dates: start: 20100706
  6. AMPYRA [Suspect]
  7. CALTRATE (CALCIUM CARBONATE) [Concomitant]
  8. FISH OIL (FISH OIL) [Concomitant]
  9. TIZANIDINE (TIZANIDINE) [Concomitant]
  10. VITAMIN D (ERRGOCALCIFEROL) [Concomitant]
  11. ASPIRIN [Concomitant]
  12. SIMVASTATIN [Concomitant]
  13. VERAPAMIL [Concomitant]
  14. NAPROXEN [Concomitant]
  15. BACLOFEN [Concomitant]
  16. OMEPRAZOLE [Concomitant]

REACTIONS (3)
  - KIDNEY INFECTION [None]
  - URINARY TRACT INFECTION [None]
  - NEPHROLITHIASIS [None]
